FAERS Safety Report 18153169 (Version 2)
Quarter: 2023Q2

REPORT INFORMATION
  Report Type: Spontaneous
  Country: US (occurrence: US)
  Receive Date: 20200815
  Receipt Date: 20230413
  Transmission Date: 20230722
  Serious: No
  Sender: FDA-Public Use
  Company Number: US-SHIRE-US202026202

PATIENT
  Sex: Male

DRUGS (6)
  1. FIRAZYR [Suspect]
     Active Substance: ICATIBANT ACETATE
     Indication: Hypothyroidism
     Dosage: UNK
     Route: 058
     Dates: start: 20170321
  2. FIRAZYR [Suspect]
     Active Substance: ICATIBANT ACETATE
     Indication: Hypothyroidism
     Dosage: UNK
     Route: 058
     Dates: start: 20170321
  3. FIRAZYR [Suspect]
     Active Substance: ICATIBANT ACETATE
     Indication: Complement factor abnormal
  4. FIRAZYR [Suspect]
     Active Substance: ICATIBANT ACETATE
     Indication: Complement factor abnormal
  5. FLUTICASONE [Concomitant]
     Active Substance: FLUTICASONE
     Indication: Product used for unknown indication
     Dosage: UNK
     Route: 065
  6. HAEGARDA [Concomitant]
     Active Substance: HUMAN C1-ESTERASE INHIBITOR
     Indication: Product used for unknown indication
     Dosage: UNK
     Route: 065

REACTIONS (4)
  - Hereditary angioedema [Not Recovered/Not Resolved]
  - Stress [Not Recovered/Not Resolved]
  - Product use issue [Unknown]
  - Inappropriate schedule of product administration [Unknown]
